FAERS Safety Report 18764538 (Version 1)
Quarter: 2021Q1

REPORT INFORMATION
  Report Type: Report from Study
  Country: US (occurrence: US)
  Receive Date: 20210120
  Receipt Date: 20210120
  Transmission Date: 20210419
  Serious: Yes (Other)
  Sender: FDA-Public Use
  Company Number: US-TEVA-2020-US-1857405

PATIENT
  Age: 47 Year
  Sex: Female

DRUGS (1)
  1. CLOZAPINE TEVA [Suspect]
     Active Substance: CLOZAPINE
     Route: 048
     Dates: start: 20201106, end: 20201204

REACTIONS (3)
  - Granulocytopenia [Recovering/Resolving]
  - Agranulocytosis [Recovering/Resolving]
  - Neutrophil count abnormal [Recovering/Resolving]

NARRATIVE: CASE EVENT DATE: 202012
